FAERS Safety Report 10219904 (Version 2)
Quarter: 2014Q2

REPORT INFORMATION
  Report Type: Spontaneous
  Country: FR (occurrence: FR)
  Receive Date: 20140605
  Receipt Date: 20140618
  Transmission Date: 20141212
  Serious: Yes (Hospitalization)
  Sender: FDA-Public Use
  Company Number: FR-PFIZER INC-2014151308

PATIENT
  Age: 96 Year
  Sex: Female

DRUGS (15)
  1. XANAX [Suspect]
     Dosage: 1 DF, 3X/DAY
     Route: 048
  2. TRANXENE [Interacting]
     Dosage: 40 MG, SINGLE
     Route: 048
     Dates: start: 20140325, end: 20140325
  3. DEROXAT [Interacting]
     Dosage: 20 MG, SINGLE
     Route: 048
     Dates: start: 20140325, end: 20140325
  4. SEROPLEX [Interacting]
     Dosage: 20 MG, 1X/DAY IN THE EVENING
     Route: 048
  5. ZYPREXA [Interacting]
     Dosage: 7.5 MG, SINGLE
     Route: 048
     Dates: start: 20140325, end: 20140325
  6. TAREG [Concomitant]
     Dosage: 1 DF, UNK
  7. KALEORID [Concomitant]
     Dosage: 1 DF, UNK
  8. IMUREL [Concomitant]
     Dosage: 1 DF, UNK
  9. CHONDROSULF [Concomitant]
     Dosage: 1 DF, UNK
  10. TARDYFERON [Concomitant]
     Dosage: 1 DF, 1X/DAY IN THE MORNING
  11. UVEDOSE [Concomitant]
     Dosage: 100000 IU, EVERY 3 MONTHS
  12. STILNOX [Concomitant]
     Dosage: 0.5 DF, 1X/DAY AT BEDTIME
  13. DAFALGAN [Concomitant]
     Dosage: 1 TABLET IN THE MORNING, AT NOON AND IN THE EVENING
  14. MOVICOL [Concomitant]
     Dosage: 2 DF, 1X/DAY IN THE MORNING
  15. TANGANIL [Concomitant]
     Dosage: 1 TABLET IN THE MORNING AND AT NOON

REACTIONS (4)
  - Drug interaction [Recovered/Resolved]
  - Somnolence [Recovered/Resolved]
  - Pneumonia aspiration [Recovered/Resolved]
  - Accidental exposure to product [Recovered/Resolved]
